FAERS Safety Report 5441628-X (Version None)
Quarter: 2007Q3

REPORT INFORMATION
  Report Type: 
  Country: None (occurrence: None)
  Receive Date: 20070904
  Receipt Date: 20070824
  Transmission Date: 20080115
  Serious: Yes (Other)
  Sender: FDA-Public Use
  Company Number: GB-NOVOPROD-265263

PATIENT
  Sex: Female

DRUGS (2)
  1. LEVEMIR [Suspect]
     Indication: DIABETES MELLITUS
  2. METFORMIN [Concomitant]

REACTIONS (3)
  - CHILLS [None]
  - EPILEPSY [None]
  - HYPERHIDROSIS [None]
